FAERS Safety Report 8460856-2 (Version None)
Quarter: 2012Q2

REPORT INFORMATION
  Report Type: 
  Country: None (occurrence: None)
  Receive Date: 20120625
  Receipt Date: 20120613
  Transmission Date: 20120825
  Serious: Yes (Hospitalization)
  Sender: FDA-Public Use
  Company Number: SE-AMGEN-SWECT2012034205

PATIENT
  Age: 70 Year
  Sex: Female

DRUGS (3)
  1. ETANERCEPT [Suspect]
     Indication: RHEUMATOID ARTHRITIS
     Dosage: 50 MG, WEEKLY
     Dates: start: 20050512
  2. SULFASALAZINE [Concomitant]
     Dosage: UNK
     Dates: start: 20050901
  3. METHOTREXATE [Concomitant]
     Dosage: UNK
     Dates: start: 20050512

REACTIONS (1)
  - BREAST CANCER FEMALE [None]
